FAERS Safety Report 13573642 (Version 2)
Quarter: 2017Q2

REPORT INFORMATION
  Report Type: Spontaneous
  Country: US (occurrence: US)
  Receive Date: 20170523
  Receipt Date: 20170627
  Transmission Date: 20170830
  Serious: Yes (Hospitalization, Other)
  Sender: FDA-Public Use
  Company Number: US-SUPERNUS PHARMACEUTICALS, INC.-2017SUP00116

PATIENT
  Age: 21 Year
  Sex: Male
  Weight: 104.31 kg

DRUGS (4)
  1. OXTELLAR XR [Suspect]
     Active Substance: OXCARBAZEPINE
     Indication: EPILEPSY
     Dosage: 600 MG, 3X/DAY ^TAKEN BEFORE 1200 NOON^
     Route: 048
     Dates: start: 201604
  2. ALBUTEROL INHALER [Concomitant]
     Active Substance: ALBUTEROL
     Dosage: UNK, AS NEEDED
  3. MORPHINE [Suspect]
     Active Substance: MORPHINE
     Indication: HEADACHE
     Dosage: UNK
     Dates: start: 20170508
  4. IBUPROFEN. [Concomitant]
     Active Substance: IBUPROFEN
     Route: 048

REACTIONS (16)
  - Hypertension [Unknown]
  - Seizure [Recovered/Resolved]
  - Vomiting [Recovered/Resolved]
  - Nausea [Recovered/Resolved]
  - Nephrolithiasis [Recovered/Resolved]
  - Asthenia [Unknown]
  - Dehydration [Unknown]
  - Headache [Recovered/Resolved]
  - Cough [Unknown]
  - Drug dose omission [Recovered/Resolved]
  - Drug hypersensitivity [Unknown]
  - Hypokalaemia [Unknown]
  - Haemodynamic instability [Unknown]
  - Acute kidney injury [Unknown]
  - Staring [Recovered/Resolved]
  - Dizziness [Unknown]

NARRATIVE: CASE EVENT DATE: 201704
